FAERS Safety Report 8789985 (Version 6)
Quarter: 2013Q2

REPORT INFORMATION
  Report Type: Spontaneous
  Country: US (occurrence: US)
  Receive Date: 20120917
  Receipt Date: 20130409
  Transmission Date: 20140414
  Serious: Yes (Hospitalization, Other)
  Sender: FDA-Public Use
  Company Number: US-PFIZER INC-2012228178

PATIENT
  Age: 58 Year
  Sex: Female
  Weight: 134.7 kg

DRUGS (14)
  1. CELEBREX [Suspect]
     Indication: ARTHRITIS
     Dosage: ONCE A DAY
     Dates: start: 19990915, end: 20060720
  2. AMARYL [Concomitant]
     Dosage: 4 MG, 1X/DAY
     Route: 048
  3. LASIX [Concomitant]
     Dosage: 20 MG, 3X/DAY
  4. ATIVAN [Concomitant]
     Dosage: 1 MG, 1X/DAY
  5. PREDNISOLONE [Concomitant]
     Dosage: 5 MG, UNK
  6. NEURONTIN [Concomitant]
     Dosage: 600 MG, 3X/DAY
  7. LOPRESSOR [Concomitant]
     Indication: HYPERTENSION
     Dosage: 50 MG, UNK
  8. SINEMET [Concomitant]
     Dosage: CARBIDOPA 25/LEVODOPA 100 MG, UNK
  9. ZOLOFT [Concomitant]
     Dosage: 100 MG, UNK
  10. VITAMIN D3 [Concomitant]
     Dosage: 1000 MG, 3X/DAY
  11. FISH OIL [Concomitant]
     Dosage: 1000 MG, 1X/DAY
  12. ALLOPURINOL [Concomitant]
     Dosage: 300 MG, UNK
  13. VITAMIN B12 [Concomitant]
     Dosage: 1000 MG, 1X/DAY
  14. ASPIRIN [Concomitant]
     Dosage: 81 MG, 1X/DAY

REACTIONS (3)
  - Back pain [Unknown]
  - Back disorder [Unknown]
  - Diabetes mellitus [Unknown]
